FAERS Safety Report 10097323 (Version 3)
Quarter: 2014Q3

REPORT INFORMATION
  Report Type: Spontaneous
  Country: GB (occurrence: GB)
  Receive Date: 20140423
  Receipt Date: 20140819
  Transmission Date: 20150326
  Serious: Yes (Death)
  Sender: FDA-Public Use
  Company Number: PHFR2014GB002979

PATIENT
  Sex: Male

DRUGS (6)
  1. SENNA [Concomitant]
     Active Substance: SENNA LEAF\SENNOSIDES\SENNOSIDES A AND B
     Indication: CONSTIPATION
     Dosage: 7.5 MG, UNK
     Route: 048
  2. SODIUM VALPROATE [Concomitant]
     Active Substance: VALPROATE SODIUM
     Indication: BIPOLAR DISORDER
     Dosage: 1400 MG, UNK
     Route: 048
  3. TIOTROPIUM BROMIDE [Concomitant]
     Active Substance: TIOTROPIUM BROMIDE
     Indication: ASTHMA
     Dosage: 0.018 MG, UNK
     Route: 048
  4. PIRENZEPINE [Concomitant]
     Active Substance: PIRENZEPINE
     Indication: BIPOLAR DISORDER
     Dosage: 100 MG, UNK
     Route: 048
  5. CLOZARIL [Suspect]
     Active Substance: CLOZAPINE
     Indication: SCHIZOPHRENIA
     Dosage: 350 MG, UNK
     Route: 048
     Dates: start: 20130306
  6. TIOTROPIUM BROMIDE [Concomitant]
     Active Substance: TIOTROPIUM BROMIDE
     Indication: BRONCHITIS

REACTIONS (1)
  - Arteriosclerosis coronary artery [Fatal]
